FAERS Safety Report 16989496 (Version 1)
Quarter: 2019Q4

REPORT INFORMATION
  Report Type: Spontaneous
  Country: US (occurrence: US)
  Receive Date: 20191101
  Receipt Date: 20191101
  Transmission Date: 20200122
  Serious: Yes (Hospitalization)
  Sender: FDA-Public Use
  Company Number: None

PATIENT
  Age: 82 Year
  Sex: Female

DRUGS (2)
  1. CINACALCET. [Suspect]
     Active Substance: CINACALCET
     Indication: HYPERPARATHYROIDISM
     Route: 048
     Dates: start: 20190809
  2. N/A [Concomitant]
     Active Substance: UNSPECIFIED INGREDIENT

REACTIONS (4)
  - Therapy cessation [None]
  - Cystitis [None]
  - Vascular dementia [None]
  - Urinary tract infection [None]

NARRATIVE: CASE EVENT DATE: 20190812
